FAERS Safety Report 20691408 (Version 1)
Quarter: 2022Q2

REPORT INFORMATION
  Report Type: Spontaneous
  Country: US (occurrence: US)
  Receive Date: 20220408
  Receipt Date: 20220408
  Transmission Date: 20220720
  Serious: No
  Sender: FDA-Public Use
  Company Number: US-PFIZER INC-2021661783

PATIENT
  Age: 60 Year
  Sex: Male

DRUGS (2)
  1. PREGABALIN [Suspect]
     Active Substance: PREGABALIN
     Indication: Diabetic neuropathy
     Dosage: 300MG CAPSULE ONCE DAILY IN THE EVENING, AND A 75MG CAPSULE AT LUNCHTIME
  2. PREGABALIN [Suspect]
     Active Substance: PREGABALIN
     Dosage: 2 OF THE 300MG TABS AND 1 75MG TAB

REACTIONS (4)
  - Drug ineffective [Unknown]
  - Diabetic nephropathy [Unknown]
  - Condition aggravated [Unknown]
  - Overdose [Unknown]
